FAERS Safety Report 7821504-5 (Version None)
Quarter: 2011Q4

REPORT INFORMATION
  Report Type: 
  Country: None (occurrence: None)
  Receive Date: 20111018
  Receipt Date: 20111011
  Transmission Date: 20120403
  Serious: Yes (Disabling)
  Sender: FDA-Public Use
  Company Number: PHHY2011GB89553

PATIENT

DRUGS (5)
  1. AMLODIPINE [Concomitant]
  2. CALCIUM W/VITAMIN D NOS [Concomitant]
  3. FLUOXETINE [Concomitant]
  4. ALENDRONATE SODIUM [Suspect]
     Indication: OSTEOPOROSIS
     Dosage: 70 MG, UNK
     Route: 048
  5. EPROSARTAN [Concomitant]

REACTIONS (1)
  - MICTURITION URGENCY [None]
